FAERS Safety Report 6314430-4 (Version None)
Quarter: 2009Q3

REPORT INFORMATION
  Report Type: 
  Country: None (occurrence: None)
  Receive Date: 20090819
  Receipt Date: 20090812
  Transmission Date: 20100115
  Serious: Yes (Death)
  Sender: FDA-Public Use
  Company Number: IN-ROCHE-650063

PATIENT
  Age: 13 Year
  Sex: Female

DRUGS (1)
  1. TAMIFLU [Suspect]
     Route: 065
     Dates: start: 20090808

REACTIONS (1)
  - LOWER RESPIRATORY TRACT INFECTION VIRAL [None]
